FAERS Safety Report 11793593 (Version 1)
Quarter: 2015Q4

REPORT INFORMATION
  Report Type: Report from Study
  Country: BR (occurrence: BR)
  Receive Date: 20151202
  Receipt Date: 20151202
  Transmission Date: 20160305
  Serious: Yes (Other)
  Sender: FDA-Public Use
  Company Number: BR-BIOGENIDEC-2015BI158176

PATIENT
  Age: 41 Year
  Sex: Female

DRUGS (1)
  1. AVONEX [Suspect]
     Active Substance: INTERFERON BETA-1A
     Indication: MULTIPLE SCLEROSIS
     Route: 030
     Dates: start: 20130709

REACTIONS (5)
  - Malaise [Not Recovered/Not Resolved]
  - Depression [Unknown]
  - Hypertension [Not Recovered/Not Resolved]
  - Pyrexia [Not Recovered/Not Resolved]
  - CSF shunt operation [Recovered/Resolved]

NARRATIVE: CASE EVENT DATE: 2014
